FAERS Safety Report 7032519-1 (Version None)
Quarter: 2010Q4

REPORT INFORMATION
  Report Type: 
  Country: None (occurrence: None)
  Receive Date: 20101004
  Receipt Date: 20100922
  Transmission Date: 20110411
  Serious: Yes (Other)
  Sender: FDA-Public Use
  Company Number: 2010MA002914

PATIENT
  Sex: Female

DRUGS (1)
  1. FLUOXETINE [Suspect]
     Dosage: 20 MG; PO
     Route: 048
     Dates: start: 20100101

REACTIONS (2)
  - DRUG EXPOSURE DURING PREGNANCY [None]
  - PREGNANCY [None]
